FAERS Safety Report 6020373-6 (Version None)
Quarter: 2008Q4

REPORT INFORMATION
  Report Type: 
  Country: None (occurrence: None)
  Receive Date: 20081226
  Receipt Date: 20080711
  Transmission Date: 20090506
  Serious: Yes (Hospitalization)
  Sender: FDA-Public Use
  Company Number: JP-MERCK-0807USA02354

PATIENT
  Age: 93 Year
  Sex: Female
  Weight: 30 kg

DRUGS (4)
  1. HYZAAR [Suspect]
     Indication: HYPERTENSION
     Route: 048
     Dates: start: 20080501, end: 20080628
  2. ONEALFA [Suspect]
     Indication: OSTEOPOROSIS
     Route: 048
     Dates: end: 20080628
  3. CALBLOCK [Concomitant]
     Indication: HYPERTENSION
     Route: 048
  4. MAGMITT [Concomitant]
     Indication: CONSTIPATION
     Route: 048

REACTIONS (4)
  - ALTERED STATE OF CONSCIOUSNESS [None]
  - DEHYDRATION [None]
  - HYPERCALCAEMIA [None]
  - RENAL IMPAIRMENT [None]
